FAERS Safety Report 5373237-5 (Version None)
Quarter: 2007Q2

REPORT INFORMATION
  Report Type: 
  Country: None (occurrence: None)
  Receive Date: 20070628
  Receipt Date: 20070621
  Transmission Date: 20071010
  Serious: Yes (Hospitalization, Other)
  Sender: FDA-Public Use
  Company Number: PHBS2007BE10532

PATIENT
  Age: 62 Year
  Sex: Male

DRUGS (2)
  1. DIOVAN HCT [Suspect]
     Indication: HYPERTENSION
     Dosage: VALS 160 / HCT 12.5 MG/DAY
     Route: 048
  2. PRAVASTATIN [Concomitant]

REACTIONS (3)
  - CEREBRAL THROMBOSIS [None]
  - GAIT DISTURBANCE [None]
  - SPEECH DISORDER [None]
